FAERS Safety Report 15341454 (Version 1)
Quarter: 2018Q4

REPORT INFORMATION
  Report Type: Spontaneous
  Country: US (occurrence: US)
  Receive Date: 20180901
  Receipt Date: 20180901
  Transmission Date: 20190204
  Serious: Yes (Death, Hospitalization, Other)
  Sender: FDA-Public Use
  Company Number: US-ZYDUS-026223

PATIENT
  Age: 14 Year
  Sex: Female

DRUGS (1)
  1. BUPROPION/BUPROPION HYDROCHLORIDE [Suspect]
     Active Substance: BUPROPION HYDROCHLORIDE
     Indication: PRODUCT USED FOR UNKNOWN INDICATION
     Route: 065

REACTIONS (11)
  - Rhabdomyolysis [Unknown]
  - Death [Fatal]
  - Electrocardiogram QRS complex prolonged [Unknown]
  - Acute lung injury [Unknown]
  - Metabolic acidosis [Unknown]
  - Respiratory depression [Unknown]
  - Acute kidney injury [Unknown]
  - Depressed level of consciousness [Unknown]
  - Toxicity to various agents [Unknown]
  - Hypotension [Unknown]
  - Seizure [Unknown]
